FAERS Safety Report 13769069 (Version 2)
Quarter: 2017Q3

REPORT INFORMATION
  Report Type: Spontaneous
  Country: US (occurrence: US)
  Receive Date: 20170719
  Receipt Date: 20170726
  Transmission Date: 20171127
  Serious: Yes (Other)
  Sender: FDA-Public Use
  Company Number: US-PFIZER INC-2017309876

PATIENT
  Age: 85 Year
  Sex: Male

DRUGS (1)
  1. NOREPINEPHRINE BITARTRATE. [Suspect]
     Active Substance: NOREPINEPHRINE BITARTRATE
     Indication: SEPTIC SHOCK
     Dosage: UNK
     Route: 041

REACTIONS (1)
  - Ventricular tachycardia [Recovered/Resolved]
